FAERS Safety Report 18570988 (Version 1)
Quarter: 2020Q4

REPORT INFORMATION
  Report Type: Spontaneous
  Country: US (occurrence: US)
  Receive Date: 20201202
  Receipt Date: 20201202
  Transmission Date: 20210114
  Serious: No
  Sender: FDA-Public Use
  Company Number: US-NOVEN PHARMACEUTICALS, INC.-2020US004293

PATIENT
  Sex: Female

DRUGS (1)
  1. AGX ESTRADIOL FOR MINIVELLE [Suspect]
     Active Substance: ESTRADIOL
     Indication: HOT FLUSH
     Dosage: 0.0375 MG, 2/WEEK ON MONDAY AND FRIDAY
     Route: 062
     Dates: start: 20200717

REACTIONS (6)
  - Application site exfoliation [Recovered/Resolved]
  - Product adhesion issue [Not Recovered/Not Resolved]
  - Application site erythema [Recovered/Resolved]
  - Application site rash [Unknown]
  - Product quality issue [Not Recovered/Not Resolved]
  - Therapeutic product ineffective [Not Recovered/Not Resolved]

NARRATIVE: CASE EVENT DATE: 2020
